FAERS Safety Report 9377510 (Version 1)
Quarter: 2013Q3

REPORT INFORMATION
  Report Type: Spontaneous
  Country: BR (occurrence: BR)
  Receive Date: 20130701
  Receipt Date: 20130701
  Transmission Date: 20140515
  Serious: Yes (Other)
  Sender: FDA-Public Use
  Company Number: PHHY2013BR066572

PATIENT
  Sex: Female

DRUGS (5)
  1. RITALIN [Suspect]
     Indication: ATTENTION DEFICIT/HYPERACTIVITY DISORDER
     Dosage: UNK UKN, UNK
     Route: 048
  2. RITALIN [Suspect]
     Dosage: UNK UKN, UNK
     Route: 048
  3. RITALIN [Suspect]
     Dosage: UNK UKN, DAILY
     Route: 048
  4. RITALIN [Suspect]
     Dosage: 3 DF, DAILY
     Route: 048
  5. RITALIN LA [Suspect]
     Indication: NARCOLEPSY
     Dosage: 1 DF, QD
     Route: 048

REACTIONS (2)
  - Ectopic pregnancy [Unknown]
  - Exposure during pregnancy [Unknown]
